FAERS Safety Report 8217669-6 (Version None)
Quarter: 2012Q1

REPORT INFORMATION
  Report Type: 
  Country: None (occurrence: None)
  Receive Date: 20120315
  Receipt Date: 20120301
  Transmission Date: 20120608
  Serious: Yes (Other)
  Sender: FDA-Public Use
  Company Number: 2012000044

PATIENT
  Age: 75 Year
  Sex: Female

DRUGS (17)
  1. LOVENOX [Concomitant]
  2. ACEON [Suspect]
     Indication: VENTRICULAR EXTRASYSTOLES
     Dosage: 2.5 MG,QD, ORAL, 5 QD, ORAL, 10 QD, ORAL
     Route: 048
     Dates: start: 20120107, end: 20120127
  3. ACEON [Suspect]
     Indication: VENTRICULAR EXTRASYSTOLES
     Dosage: 2.5 MG,QD, ORAL, 5 QD, ORAL, 10 QD, ORAL
     Route: 048
     Dates: start: 20120128, end: 20120201
  4. ACEON [Suspect]
     Indication: VENTRICULAR EXTRASYSTOLES
     Dosage: 2.5 MG,QD, ORAL, 5 QD, ORAL, 10 QD, ORAL
     Route: 048
     Dates: start: 20120104
  5. LEVOTHYROX (LEVOTHYROXINS SODIUM) [Concomitant]
  6. CLOMIPRAMINE HCL [Concomitant]
  7. ZOLPIDEM TARTRATE [Concomitant]
  8. TERCIAN (CYAMEMAZINE) [Concomitant]
  9. NEXIUM [Concomitant]
  10. SECTRAL [Concomitant]
  11. TRAMADOL HCL [Concomitant]
  12. XANAX [Concomitant]
  13. ALPRAZOLAM [Concomitant]
  14. ATORVASTATIN CALCIUM [Concomitant]
  15. ACETAMINOPHEN [Concomitant]
  16. DUPHALAC [Concomitant]
  17. ZYPREXA [Concomitant]

REACTIONS (9)
  - DYSURIA [None]
  - POLLAKIURIA [None]
  - URTICARIA [None]
  - URINARY TRACT INFECTION ENTEROCOCCAL [None]
  - RASH PRURITIC [None]
  - CONJUNCTIVAL HYPERAEMIA [None]
  - PRURITUS [None]
  - LIP OEDEMA [None]
  - EYE PAIN [None]
